FAERS Safety Report 20317545 (Version 1)
Quarter: 2022Q1

REPORT INFORMATION
  Report Type: Spontaneous
  Country: AT (occurrence: AT)
  Receive Date: 20220110
  Receipt Date: 20220110
  Transmission Date: 20220423
  Serious: Yes (Other)
  Sender: FDA-Public Use
  Company Number: AT-GEN-2021-1494

PATIENT
  Age: 75 Year
  Sex: Male

DRUGS (5)
  1. ROSUVASTATIN [Suspect]
     Active Substance: ROSUVASTATIN
     Indication: Product used for unknown indication
     Dosage: 40 MG, 0-0-1
     Route: 065
  2. SERENOA REPENS WHOLE [Concomitant]
     Active Substance: SERENOA REPENS WHOLE
     Dosage: UNK
  3. PANTOPRAZOLE SODIUM [Concomitant]
     Active Substance: PANTOPRAZOLE SODIUM
     Dosage: 40 MILLIGRAM, QD 1-0-0
  4. LEVOTHYROXINE SODIUM [Concomitant]
     Active Substance: LEVOTHYROXINE SODIUM
     Dosage: 50 MICROGRAM, QW, TUESDAYS AND WEDNESDAYS ? TABLET, 0.5-0-0
  5. THROMBOSTAD [Concomitant]
     Dosage: 100 MILLIGRAM, QD 0-1-0

REACTIONS (9)
  - Dyspnoea exertional [Unknown]
  - Angina pectoris [Unknown]
  - Abnormal loss of weight [Unknown]
  - Night sweats [Unknown]
  - Muscle spasms [Unknown]
  - Abdominal pain upper [Unknown]
  - Constipation [Unknown]
  - Fatigue [Unknown]
  - Asthenia [Unknown]
